FAERS Safety Report 6438475-9 (Version None)
Quarter: 2009Q4

REPORT INFORMATION
  Report Type: 
  Country: None (occurrence: None)
  Receive Date: 20091110
  Receipt Date: 20091103
  Transmission Date: 20100525
  Serious: Yes (Disabling)
  Sender: FDA-Public Use
  Company Number: TPG2009A01001

PATIENT
  Age: 81 Year
  Sex: Female

DRUGS (5)
  1. ACTOS [Suspect]
     Indication: TYPE 2 DIABETES MELLITUS
     Dosage: 45 MG (45 MG, 1 IN 1 D), PER ORAL
     Route: 048
     Dates: start: 20081015
  2. ALLOBETA (ALLOPURINOL) [Concomitant]
  3. SIMVASTATIN [Concomitant]
  4. TORSEMIDE [Concomitant]
  5. INSUMAN COMB (INSULIN HUMAN, INSULIN HUMAN INJECTION, ISOPHANE) [Concomitant]

REACTIONS (2)
  - JOINT SWELLING [None]
  - OSTEOARTHRITIS [None]
